FAERS Safety Report 9270022 (Version 2)
Quarter: 2013Q2

REPORT INFORMATION
  Report Type: Other
  Country: FI (occurrence: FI)
  Receive Date: 20130502
  Receipt Date: 20130513
  Transmission Date: 20140414
  Serious: Yes (Other)
  Sender: FDA-Public Use
  Company Number: FI-RB-053073-13

PATIENT
  Sex: Female

DRUGS (3)
  1. BUPRENORPHINE UNSPECIFIED [Suspect]
     Indication: ANXIETY
     Dosage: DOSING DETAILS UNKNOWN
     Route: 065
  2. BUPRENORPHINE UNSPECIFIED [Suspect]
     Indication: DRUG DEPENDENCE
     Dosage: DOSING DETAILS UNKNOWN, HAD USED FOR THREE YEARS AT THE TIME OF THIS REPORT
     Route: 042
  3. CANNABIS [Suspect]
     Indication: PRODUCT USED FOR UNKNOWN INDICATION
     Dosage: DOSING DETAILS UNKNOWN; ONCE DURING THE YEAR
     Route: 055

REACTIONS (9)
  - Substance abuse [Unknown]
  - Intentional drug misuse [Unknown]
  - Anxiety [Unknown]
  - Suicidal ideation [Unknown]
  - Depression [Unknown]
  - Drug abuse [Recovered/Resolved]
  - Autoimmune thyroiditis [Unknown]
  - Drug dependence [Unknown]
  - Panic attack [Unknown]
